FAERS Safety Report 8154116-7 (Version None)
Quarter: 2012Q1

REPORT INFORMATION
  Report Type: 
  Country: None (occurrence: None)
  Receive Date: 20120221
  Receipt Date: 20120217
  Transmission Date: 20120608
  Serious: Yes (Hospitalization)
  Sender: FDA-Public Use
  Company Number: US-MERCK-0604USA01960

PATIENT
  Age: 74 Year
  Sex: Female
  Weight: 68 kg

DRUGS (3)
  1. FOSAMAX PLUS D [Suspect]
     Indication: OSTEOPOROSIS
     Route: 048
     Dates: start: 20090501, end: 20100301
  2. BONIVA [Suspect]
     Indication: OSTEOPOROSIS
     Route: 065
     Dates: start: 19990101, end: 20090101
  3. FOSAMAX [Suspect]
     Indication: OSTEOPOROSIS
     Route: 048
     Dates: start: 19990101, end: 20090101

REACTIONS (35)
  - PAIN [None]
  - OVARIAN CYST [None]
  - VOMITING [None]
  - TOOTHACHE [None]
  - RECTAL HAEMORRHAGE [None]
  - DIVERTICULUM [None]
  - FALL [None]
  - INTESTINAL MASS [None]
  - HYPOCALCAEMIA [None]
  - MEMORY IMPAIRMENT [None]
  - LUNG DISORDER [None]
  - FEMUR FRACTURE [None]
  - ORAL HERPES [None]
  - PAIN IN EXTREMITY [None]
  - HAEMORRHOIDS [None]
  - CONSTIPATION [None]
  - HAEMORRHAGIC ANAEMIA [None]
  - LEFT VENTRICULAR HYPERTROPHY [None]
  - ARTHRITIS [None]
  - OEDEMA PERIPHERAL [None]
  - NAUSEA [None]
  - OSTEOARTHRITIS [None]
  - PULMONARY VASCULAR DISORDER [None]
  - FATIGUE [None]
  - CHEST PAIN [None]
  - HYPOTHYROIDISM [None]
  - HYPERTENSION [None]
  - ABNORMAL LOSS OF WEIGHT [None]
  - TOOTH DISORDER [None]
  - THYROID NEOPLASM [None]
  - RECTAL PROLAPSE [None]
  - BACK PAIN [None]
  - SPINAL COMPRESSION FRACTURE [None]
  - HYPERCHOLESTEROLAEMIA [None]
  - SKELETAL INJURY [None]
